FAERS Safety Report 5738122-5 (Version None)
Quarter: 2008Q2

REPORT INFORMATION
  Report Type: 
  Country: None (occurrence: None)
  Receive Date: 20080514
  Receipt Date: 20080506
  Transmission Date: 20081010
  Serious: Yes (Death)
  Sender: FDA-Public Use
  Company Number: US-KINGPHARMUSA00001-K200800360

PATIENT

DRUGS (13)
  1. LEVOXYL [Suspect]
     Dosage: 50 MCG, QD
     Route: 048
     Dates: end: 20070509
  2. OXYMORPHONE HCL [Suspect]
     Indication: PAIN
     Dosage: 40 MG, BID
     Dates: start: 20070407, end: 20070509
  3. OXYMORPHONE HCL [Suspect]
     Dosage: 40 MG QAM, 20 MG QPM
     Route: 048
     Dates: start: 20070509, end: 20070510
  4. OPANA [Suspect]
     Indication: BREAKTHROUGH PAIN
     Dosage: 5 MG, BID
     Route: 048
     Dates: start: 20070407, end: 20080509
  5. OPANA [Suspect]
     Dosage: 5 MG, BID (Q12H) PRN
     Route: 048
     Dates: start: 20070509, end: 20070510
  6. DURAGESIC-100 [Suspect]
     Indication: PAIN
     Dosage: 100 MCG, Q3D
     Route: 062
     Dates: start: 20070401, end: 20070509
  7. VICODIN ES [Suspect]
     Indication: PAIN
     Dosage: UNK, QD
     Route: 048
     Dates: end: 20070509
  8. AMITRIPTYLINE HCL [Suspect]
     Indication: DEPRESSION
     Dosage: 300 MG, QHS
     Route: 048
     Dates: end: 20070509
  9. ZOLOFT [Suspect]
     Indication: DRUG USE FOR UNKNOWN INDICATION
     Dosage: 100 MG, QD
     Route: 048
     Dates: end: 20070509
  10. PROVIGIL [Suspect]
     Indication: DRUG USE FOR UNKNOWN INDICATION
     Dosage: 200 MG, UNK
     Dates: end: 20070509
  11. LUNESTA [Suspect]
     Indication: DRUG USE FOR UNKNOWN INDICATION
     Dosage: 3 MG, QHS
     Route: 048
     Dates: end: 20070509
  12. KLONOPIN [Suspect]
     Indication: DRUG USE FOR UNKNOWN INDICATION
     Dosage: 2 MG, TID
     Route: 048
  13. ARAVA [Suspect]
     Indication: RHEUMATOID ARTHRITIS
     Dosage: 20 MG, QD
     Route: 048

REACTIONS (1)
  - DRUG TOXICITY [None]
